FAERS Safety Report 19153230 (Version 3)
Quarter: 2021Q2

REPORT INFORMATION
  Report Type: Report from Study
  Country: US (occurrence: US)
  Receive Date: 20210419
  Receipt Date: 20210503
  Transmission Date: 20210717
  Serious: Yes (Life-Threatening, Hospitalization, Other)
  Sender: FDA-Public Use
  Company Number: US-PFIZER INC-2021418730

PATIENT
  Age: 19 Year
  Sex: Female

DRUGS (2)
  1. IMATINIB. [Interacting]
     Active Substance: IMATINIB MESYLATE
     Indication: PRECURSOR B-LYMPHOBLASTIC LYMPHOMA
     Dosage: 340 MG/M2, 1X/DAY
     Route: 048
  2. METHOTREXATE SODIUM. [Suspect]
     Active Substance: METHOTREXATE SODIUM
     Indication: PRECURSOR B-LYMPHOBLASTIC LYMPHOMA
     Dosage: 5000MG/M2, FIRST CYCLE OF HIGH?DOSE METHOTREXATE
     Route: 037

REACTIONS (5)
  - Drug interaction [Unknown]
  - Neutropenia [Unknown]
  - Drug clearance decreased [Recovering/Resolving]
  - Thrombocytopenia [Unknown]
  - Acute kidney injury [Recovering/Resolving]
